FAERS Safety Report 6467306-6 (Version None)
Quarter: 2009Q4

REPORT INFORMATION
  Report Type: 
  Country: None (occurrence: None)
  Receive Date: 20091127
  Receipt Date: 20091117
  Transmission Date: 20100525
  Serious: Yes (Other)
  Sender: FDA-Public Use
  Company Number: ADR51292009

PATIENT
  Sex: Male

DRUGS (3)
  1. CIPROFLOXACIN [Suspect]
     Indication: HYPERTENSION
  2. CYCLOPHOSPHAMIDE [Concomitant]
  3. FLUDARA [Concomitant]

REACTIONS (4)
  - DYSPNOEA [None]
  - HAEMOLYTIC ANAEMIA [None]
  - MALAISE [None]
  - THROMBOCYTOPENIA [None]
